FAERS Safety Report 6278479-2 (Version None)
Quarter: 2009Q3

REPORT INFORMATION
  Report Type: 
  Country: None (occurrence: None)
  Receive Date: 20090722
  Receipt Date: 20090708
  Transmission Date: 20100115
  Serious: Yes (Other)
  Sender: FDA-Public Use
  Company Number: DE-BAUSCH-2009BL003331

PATIENT
  Age: 70 Year
  Sex: Female
  Weight: 61 kg

DRUGS (2)
  1. FLOXAL EDO AUGENTROPFEN [Suspect]
     Indication: BLEPHARITIS
     Route: 047
     Dates: start: 20090613, end: 20090613
  2. FLOXAL EDO AUGENTROPFEN [Suspect]
     Indication: PURULENT DISCHARGE
     Route: 047
     Dates: start: 20090613, end: 20090613

REACTIONS (5)
  - ASTHENIA [None]
  - CHILLS [None]
  - FATIGUE [None]
  - NAUSEA [None]
  - URTICARIA [None]
